FAERS Safety Report 23503667 (Version 1)
Quarter: 2024Q1

REPORT INFORMATION
  Report Type: Spontaneous
  Country: ES (occurrence: ES)
  Receive Date: 20240209
  Receipt Date: 20240209
  Transmission Date: 20240409
  Serious: Yes (Disabling)
  Sender: FDA-Public Use
  Company Number: ES-AEMPS-1480344

PATIENT
  Age: 21 Year
  Sex: Female
  Weight: 47 kg

DRUGS (1)
  1. LEVONORGESTREL [Suspect]
     Active Substance: LEVONORGESTREL
     Indication: Post coital contraception
     Dosage: 1 DOSAGE FORM
     Route: 048
     Dates: start: 20240120

REACTIONS (1)
  - Tachycardia [Recovering/Resolving]

NARRATIVE: CASE EVENT DATE: 20240120
